FAERS Safety Report 8883301 (Version 5)
Quarter: 2013Q4

REPORT INFORMATION
  Report Type: Spontaneous
  Country: US (occurrence: US)
  Receive Date: 20121102
  Receipt Date: 20131009
  Transmission Date: 20140711
  Serious: Yes (Hospitalization, Disabling, Other)
  Sender: FDA-Public Use
  Company Number: US-009507513-1210USA014655

PATIENT
  Sex: Female
  Weight: 52.15 kg

DRUGS (6)
  1. FOSAMAX [Suspect]
     Indication: OSTEOPOROSIS
     Dosage: 10 MG, QD
     Route: 048
     Dates: start: 20010405, end: 20080208
  2. FOSAMAX [Suspect]
     Dosage: 5 MG, UNK
     Route: 048
  3. FOSAMAX [Suspect]
     Dosage: 70 MG, QW
     Route: 048
     Dates: start: 20020227
  4. ALENDRONATE SODIUM [Suspect]
     Indication: OSTEOPOROSIS
     Dosage: 70 MG, QW
     Route: 048
     Dates: start: 20080416, end: 20110126
  5. ASCORBIC ACID [Concomitant]
     Dosage: UNK
     Dates: start: 2011
  6. VITAMIN B COMPLEX [Concomitant]
     Dosage: UNK
     Dates: start: 2011

REACTIONS (39)
  - Intramedullary rod insertion [Unknown]
  - Intramedullary rod insertion [Unknown]
  - Femur fracture [Recovering/Resolving]
  - Femur fracture [Recovering/Resolving]
  - Femur fracture [Recovered/Resolved]
  - Osteopenia [Unknown]
  - Fall [Unknown]
  - Balance disorder [Unknown]
  - Stress [Unknown]
  - Adverse drug reaction [Unknown]
  - Flat affect [Unknown]
  - Weight increased [Unknown]
  - Nasal congestion [Unknown]
  - Cerebral small vessel ischaemic disease [Unknown]
  - Immune thrombocytopenic purpura [Unknown]
  - Nasal septum deviation [Unknown]
  - Sinus disorder [Unknown]
  - Mitral valve prolapse [Unknown]
  - Aortic valve incompetence [Unknown]
  - Mitral valve incompetence [Unknown]
  - Tricuspid valve incompetence [Unknown]
  - Hyperglycaemia [Unknown]
  - Haemorrhoids [Unknown]
  - Stress urinary incontinence [Unknown]
  - Arthritis [Unknown]
  - Muscle strain [Unknown]
  - Blood pressure increased [Unknown]
  - Bone cyst [Unknown]
  - Anaemia [Unknown]
  - Increased tendency to bruise [Unknown]
  - Temperature intolerance [Unknown]
  - Scoliosis [Unknown]
  - Antiphospholipid syndrome [Unknown]
  - Adverse event [Unknown]
  - Erythema [Unknown]
  - Musculoskeletal pain [Unknown]
  - Constipation [Unknown]
  - Urticaria [Unknown]
  - Gastritis [Unknown]
